FAERS Safety Report 9475751 (Version 1)
Quarter: 2013Q3

REPORT INFORMATION
  Report Type: Spontaneous
  Country: FR (occurrence: FR)
  Receive Date: 20130826
  Receipt Date: 20130826
  Transmission Date: 20140515
  Serious: Yes (Hospitalization)
  Sender: FDA-Public Use
  Company Number: FR-MYLANLABS-2013S1017889

PATIENT
  Age: 64 Year
  Sex: Male

DRUGS (13)
  1. METHOTREXATE [Suspect]
     Indication: B-CELL LYMPHOMA STAGE IV
     Route: 041
     Dates: start: 20130615, end: 20130615
  2. METHOTREXATE [Suspect]
     Indication: B-CELL LYMPHOMA STAGE IV
     Route: 041
     Dates: start: 20130615, end: 20130615
  3. METHOTREXATE [Suspect]
     Indication: B-CELL LYMPHOMA STAGE IV
     Route: 041
     Dates: start: 20130710, end: 20130710
  4. METHOTREXATE [Suspect]
     Indication: B-CELL LYMPHOMA STAGE IV
     Route: 041
     Dates: start: 20130710, end: 20130710
  5. METHOTREXATE [Suspect]
     Indication: B-CELL LYMPHOMA STAGE IV
     Route: 041
     Dates: start: 20130801, end: 20130801
  6. BACTRIM FORTE [Interacting]
     Route: 048
     Dates: end: 20130614
  7. BACTRIM FORTE [Interacting]
     Route: 048
     Dates: end: 20130708
  8. LASILIX [Concomitant]
  9. POLARAMINE [Concomitant]
  10. SOLUMEDROL [Concomitant]
  11. ZOPHREN [Concomitant]
  12. PRIMPERAN [Concomitant]
  13. HEPARIN [Concomitant]

REACTIONS (2)
  - Renal failure acute [Recovered/Resolved]
  - Chemotherapeutic drug level increased [Recovered/Resolved]
